FAERS Safety Report 23977331 (Version 4)
Quarter: 2025Q2

REPORT INFORMATION
  Report Type: Spontaneous
  Country: US (occurrence: US)
  Receive Date: 20240614
  Receipt Date: 20250627
  Transmission Date: 20250716
  Serious: No
  Sender: SANOFI AVENTIS
  Company Number: US-SA-SAC20240606001034

PATIENT
  Age: 53 Year
  Sex: Female
  Weight: 90.26 kg

DRUGS (1)
  1. REZUROCK [Suspect]
     Active Substance: BELUMOSUDIL
     Indication: Chronic graft versus host disease
     Dosage: 200 MG, BID
     Route: 048
     Dates: start: 20220928

REACTIONS (9)
  - Gastrointestinal disorder [Unknown]
  - Pain [Unknown]
  - Chest pain [Unknown]
  - Fall [Unknown]
  - Arthritis [Unknown]
  - Arthralgia [Unknown]
  - Intentional dose omission [Unknown]
  - Product use complaint [Unknown]
  - Inappropriate schedule of product administration [Unknown]

NARRATIVE: CASE EVENT DATE: 20220928
